FAERS Safety Report 17017770 (Version 4)
Quarter: 2020Q1

REPORT INFORMATION
  Report Type: Spontaneous
  Country: US (occurrence: US)
  Receive Date: 20191111
  Receipt Date: 20200113
  Transmission Date: 20200409
  Serious: No
  Sender: FDA-Public Use
  Company Number: US-PFIZER INC-2019482363

PATIENT
  Age: 66 Year
  Sex: Female
  Weight: 99.79 kg

DRUGS (4)
  1. IBRANCE [Suspect]
     Active Substance: PALBOCICLIB
     Indication: BREAST CANCER METASTATIC
     Dosage: 125 MG, CYCLIC (125MG CAPSULE DAILY FOR 21 DAYS THEN 7 DAYS OFF )
     Route: 048
     Dates: end: 20191022
  2. IBRANCE [Suspect]
     Active Substance: PALBOCICLIB
     Dosage: UNK(21 DAYS ON AND 7 DAYS OFF )
     Dates: start: 20191008
  3. LETROZOLE. [Concomitant]
     Active Substance: LETROZOLE
     Indication: INVASIVE LOBULAR BREAST CARCINOMA
     Dosage: 2.5 MG, DAILY
     Route: 048
     Dates: start: 2017
  4. METOPROLOL. [Concomitant]
     Active Substance: METOPROLOL
     Dosage: UNK

REACTIONS (17)
  - Mean cell haemoglobin concentration decreased [Unknown]
  - Red cell distribution width increased [Unknown]
  - Pruritus [Unknown]
  - Lip pain [Unknown]
  - Red blood cell count decreased [Unknown]
  - Decreased appetite [Unknown]
  - Weight decreased [Unknown]
  - Neutrophil count decreased [Unknown]
  - Basophil count increased [Unknown]
  - Blood count abnormal [Unknown]
  - White blood cell count decreased [Unknown]
  - Haemoglobin decreased [Unknown]
  - Lip infection [Unknown]
  - Lip swelling [Unknown]
  - Vulvovaginal mycotic infection [Not Recovered/Not Resolved]
  - Eating disorder [Unknown]
  - Lip haemorrhage [Unknown]

NARRATIVE: CASE EVENT DATE: 2019
